FAERS Safety Report 4620327-8 (Version None)
Quarter: 2005Q1

REPORT INFORMATION
  Report Type: 
  Country: None (occurrence: None)
  Receive Date: 20050324
  Receipt Date: 20050316
  Transmission Date: 20050727
  Serious: Yes (Death)
  Sender: FDA-Public Use
  Company Number: 163-20785-04100343

PATIENT
  Age: 68 Year
  Sex: Female

DRUGS (3)
  1. THALOMID [Suspect]
     Indication: MULTIPLE MYELOMA
     Dosage: 400 MG, QD, ORAL
     Route: 048
     Dates: start: 20040206, end: 20040530
  2. PREDNISONE [Concomitant]
  3. DECADRON [Concomitant]

REACTIONS (4)
  - FATIGUE [None]
  - PAIN [None]
  - PULMONARY EMBOLISM [None]
  - SKIN DISCOLOURATION [None]
